FAERS Safety Report 15703466 (Version 7)
Quarter: 2021Q2

REPORT INFORMATION
  Report Type: Spontaneous
  Country: US (occurrence: US)
  Receive Date: 20181210
  Receipt Date: 20210514
  Transmission Date: 20210716
  Serious: No
  Sender: FDA-Public Use
  Company Number: US-PFIZER INC-2018021180

PATIENT
  Age: 40 Year
  Sex: Male
  Weight: 89.36 kg

DRUGS (6)
  1. LEVOTHYROXINE. [Concomitant]
     Active Substance: LEVOTHYROXINE
     Indication: THYROID DISORDER
     Dosage: UNK
     Dates: start: 2003
  2. GENOTROPIN [Suspect]
     Active Substance: SOMATROPIN
     Indication: HYPOPITUITARISM
     Dosage: 0.3 MG, DAILY
  3. DESMOPRESSIN [Concomitant]
     Active Substance: DESMOPRESSIN
     Indication: FLUID RETENTION
     Dosage: 0.4 MG, DAILY
     Route: 048
     Dates: start: 2003
  4. GENOTROPIN [Suspect]
     Active Substance: SOMATROPIN
     Dosage: 0.4 MG, DAILY
  5. PREDNISONE. [Concomitant]
     Active Substance: PREDNISONE
     Dosage: UNK
     Dates: start: 2003
  6. GENOTROPIN [Suspect]
     Active Substance: SOMATROPIN
     Dosage: 0.4 MG, DAILY
     Dates: start: 2018

REACTIONS (17)
  - Ocular hyperaemia [Unknown]
  - Off label use [Unknown]
  - Product prescribing error [Unknown]
  - Anxiety [Unknown]
  - Wrong technique in device usage process [Unknown]
  - Skin disorder [Unknown]
  - Blood thyroid stimulating hormone decreased [Unknown]
  - Drug dose omission by device [Unknown]
  - Drug dose omission by device [Unknown]
  - Red cell distribution width increased [Unknown]
  - Device breakage [Unknown]
  - Pollakiuria [Unknown]
  - Snoring [Unknown]
  - Device leakage [Unknown]
  - Product use in unapproved indication [Unknown]
  - Device leakage [Unknown]
  - Visual impairment [Unknown]

NARRATIVE: CASE EVENT DATE: 2018
